FAERS Safety Report 13895540 (Version 1)
Quarter: 2017Q3

REPORT INFORMATION
  Report Type: Report from Study
  Country: TW (occurrence: TW)
  Receive Date: 20170823
  Receipt Date: 20170823
  Transmission Date: 20171127
  Serious: Yes (Death, Other)
  Sender: FDA-Public Use
  Company Number: TW-ROCHE-1982868

PATIENT

DRUGS (4)
  1. MYCOPHENOLATE MOFETIL. [Suspect]
     Active Substance: MYCOPHENOLATE MOFETIL
     Indication: PROPHYLAXIS AGAINST TRANSPLANT REJECTION
     Dosage: ON POSTOPERATIVE DAY 1, THE DOSE WAS REDUCED BY 250 MG EVERY 3-6 MONTHS UNTIL IT REACHED 1250 MG/ DA
     Route: 065
  2. PREDNISOLONE. [Suspect]
     Active Substance: PREDNISOLONE
     Indication: PNEUMOCYSTIS JIROVECII PNEUMONIA
     Dosage: AND TAPERED BY 5 MG/DAY UNTIL IT REACHED THE MAINTENANCE DOSE OF 20 MG/DAY IN THE 1ST POST-HTX MONTH
     Route: 048
  3. EVEROLIMUS [Suspect]
     Active Substance: EVEROLIMUS
     Indication: PROPHYLAXIS AGAINST TRANSPLANT REJECTION
     Dosage: TROUGH LEVEL REACHED 8-14 NG/ML,
     Route: 065
  4. PREDNISOLONE. [Suspect]
     Active Substance: PREDNISOLONE
     Dosage: DOSE WAS TAPERED BY 5 MG/DAY TILL IT REACHED THE MAINTENANCE DOSE OF 20 MG/DAY IN THE 1ST POST-HTX M
     Route: 048

REACTIONS (5)
  - Leukopenia [Fatal]
  - Pneumocystis jirovecii pneumonia [Not Recovered/Not Resolved]
  - Multiple organ dysfunction syndrome [Fatal]
  - Fungaemia [Fatal]
  - Lymphopenia [Unknown]
